FAERS Safety Report 24625325 (Version 1)
Quarter: 2024Q4

REPORT INFORMATION
  Report Type: Spontaneous
  Country: US (occurrence: None)
  Receive Date: 20241115
  Receipt Date: 20241115
  Transmission Date: 20250115
  Serious: No
  Sender: Public
  Company Number: None

PATIENT
  Age: 81 Year
  Sex: Male
  Weight: 71 kg

DRUGS (3)
  1. IRON DEXTRAN [Suspect]
     Active Substance: IRON DEXTRAN
     Indication: Blood iron decreased
     Dates: start: 20240905
  2. IRON DEXTRAN [Suspect]
     Active Substance: IRON DEXTRAN
     Indication: Anaemia
  3. IRON DEXTRAN [Suspect]
     Active Substance: IRON DEXTRAN
     Indication: Cardiac failure congestive

REACTIONS (7)
  - Apnoea [None]
  - Pyrexia [None]
  - Hypotension [None]
  - Chills [None]
  - Infusion related reaction [None]
  - Anaphylactic reaction [None]
  - Unresponsive to stimuli [None]

NARRATIVE: CASE EVENT DATE: 20240905
